FAERS Safety Report 12958596 (Version 1)
Quarter: 2016Q4

REPORT INFORMATION
  Report Type: Spontaneous
  Country: US (occurrence: US)
  Receive Date: 20161121
  Receipt Date: 20161121
  Transmission Date: 20170207
  Serious: No
  Sender: FDA-Public Use
  Company Number: US-TEVA-640944USA

PATIENT
  Sex: Female

DRUGS (2)
  1. BROVANA [Concomitant]
     Active Substance: ARFORMOTEROL TARTRATE
  2. BUDESONIDE. [Suspect]
     Active Substance: BUDESONIDE
     Dosage: 0.5MG/2ML
     Route: 055
     Dates: start: 20160222, end: 20160301

REACTIONS (8)
  - Fatigue [Unknown]
  - Nervous system disorder [Unknown]
  - Muscle tightness [Unknown]
  - Nervousness [Unknown]
  - Arthralgia [Unknown]
  - Pain in extremity [Unknown]
  - Anxiety [Unknown]
  - Poor quality sleep [Unknown]

NARRATIVE: CASE EVENT DATE: 20160223
